FAERS Safety Report 14598514 (Version 1)
Quarter: 2018Q1

REPORT INFORMATION
  Report Type: Spontaneous
  Country: HK (occurrence: HK)
  Receive Date: 20180305
  Receipt Date: 20180305
  Transmission Date: 20180509
  Serious: Yes (Other)
  Sender: FDA-Public Use
  Company Number: HK-VALIDUS PHARMACEUTICALS LLC-HK-2018VAL000429

PATIENT
  Age: 34 Year
  Sex: Female

DRUGS (4)
  1. SIBUTRAMINE [Suspect]
     Active Substance: SIBUTRAMINE
     Indication: WEIGHT DECREASED
     Dosage: UNK
  2. PHENOLPHTHALEIN [Suspect]
     Active Substance: PHENOLPHTHALEIN
     Indication: WEIGHT DECREASED
     Dosage: UNK
  3. NIFEDIPINE. [Suspect]
     Active Substance: NIFEDIPINE
     Indication: WEIGHT DECREASED
     Dosage: UNK
  4. FENFLURAMINE [Suspect]
     Active Substance: FENFLURAMINE
     Indication: WEIGHT DECREASED
     Dosage: UNK

REACTIONS (4)
  - Pulmonary hypertension [Unknown]
  - Cardiac valve disease [Unknown]
  - Toxicity to various agents [Unknown]
  - Thyroid function test abnormal [Unknown]
